FAERS Safety Report 5517383-1 (Version None)
Quarter: 2007Q4

REPORT INFORMATION
  Report Type: 
  Country: None (occurrence: None)
  Receive Date: 20071109
  Receipt Date: 20071026
  Transmission Date: 20080405
  Serious: Yes (Hospitalization)
  Sender: FDA-Public Use
  Company Number: 2007S1011120

PATIENT
  Age: 57 Year
  Sex: Female

DRUGS (1)
  1. TERBINAFINE HCL [Suspect]
     Indication: ONYCHOMYCOSIS
     Dosage: 250 MG; DAILY; ORAL
     Route: 048
     Dates: start: 20060403, end: 20060501

REACTIONS (1)
  - RASH ERYTHEMATOUS [None]
